FAERS Safety Report 5126797-3 (Version None)
Quarter: 2006Q4

REPORT INFORMATION
  Report Type: 
  Country: None (occurrence: None)
  Receive Date: 20061013
  Receipt Date: 20061005
  Transmission Date: 20070319
  Serious: Yes (Other)
  Sender: FDA-Public Use
  Company Number: GB-AVENTIS-200615133EU

PATIENT
  Age: 56 Year
  Sex: Female
  Weight: 95 kg

DRUGS (5)
  1. NATRILIX-SR [Suspect]
     Indication: HYPERTENSION
     Route: 048
     Dates: start: 20060726, end: 20060818
  2. ASPIRIN [Concomitant]
  3. OMEPRAZOLE [Concomitant]
  4. COVERSYL                           /00790701/ [Concomitant]
     Route: 048
     Dates: start: 20060201, end: 20060825
  5. LEVOTHYROXINE SODIUM [Concomitant]

REACTIONS (1)
  - RENAL FAILURE [None]
